FAERS Safety Report 5213515-3 (Version None)
Quarter: 2007Q1

REPORT INFORMATION
  Report Type: 
  Country: None (occurrence: None)
  Receive Date: 20070119
  Receipt Date: 20061130
  Transmission Date: 20070707
  Serious: Yes (Hospitalization, Disabling)
  Sender: FDA-Public Use
  Company Number: US-ROCHE-467091

PATIENT
  Age: 53 Year
  Sex: Male
  Weight: 92.5 kg

DRUGS (4)
  1. PEGASYS [Suspect]
     Indication: HEPATITIS C
     Route: 058
     Dates: start: 20051207, end: 20060718
  2. COPEGUS [Concomitant]
     Route: 048
     Dates: start: 20051207, end: 20060718
  3. AMBIEN [Concomitant]
     Dosage: ADMINISTERED AT NIGHT.
     Route: 048
     Dates: start: 20060515
  4. ATARAX [Concomitant]
     Dosage: TAKEN AS NEEDED.
     Route: 048
     Dates: start: 20060406

REACTIONS (1)
  - DERMATOMYOSITIS [None]
